FAERS Safety Report 18959301 (Version 1)
Quarter: 2021Q1

REPORT INFORMATION
  Report Type: Spontaneous
  Country: NL (occurrence: NL)
  Receive Date: 20210302
  Receipt Date: 20210302
  Transmission Date: 20210420
  Serious: Yes (Disabling, Other)
  Sender: FDA-Public Use
  Company Number: NL-TEVA-2021-NL-1885332

PATIENT
  Sex: Female
  Weight: 67 kg

DRUGS (3)
  1. CITALOPRAM TABLET AFBOUW / BRAND NAME NOT SPECIFIED [Concomitant]
     Dosage: THERAPY START DATE AND END DATE: ASKU
  2. ETHINYLESTRADIOL/LEVONORGESTREL TABLET 30/150UG / BRAND NAME NOT SPECI [Suspect]
     Active Substance: ETHINYL ESTRADIOL\LEVONORGESTREL
     Indication: CONTRACEPTION
     Dosage: 1 DOSAGE FORMS DAILY;  AFTER 3 WEEKS OF STOP WEEK
     Route: 065
     Dates: start: 2014, end: 20210104
  3. RISPERIDON TABLET AFBOUW / BRAND NAME NOT SPECIFIED [Concomitant]
     Dosage: THERAPY START DATE AND END DATE: ASKU

REACTIONS (2)
  - Hypothyroidism [Not Recovered/Not Resolved]
  - Cortisol increased [Not Recovered/Not Resolved]
